FAERS Safety Report 10833389 (Version 1)
Quarter: 2015Q1

REPORT INFORMATION
  Report Type: Report from Study
  Country: PR (occurrence: PR)
  Receive Date: 20150219
  Receipt Date: 20150219
  Transmission Date: 20150721
  Serious: Yes (Hospitalization, Other)
  Sender: FDA-Public Use
  Company Number: PR-ABBVIE-15K-131-1347215-00

PATIENT
  Sex: Male
  Weight: 53.12 kg

DRUGS (2)
  1. HUMIRA [Suspect]
     Active Substance: ADALIMUMAB
     Indication: CROHN^S DISEASE
     Route: 058
     Dates: start: 20110114, end: 201410
  2. HUMIRA [Suspect]
     Active Substance: ADALIMUMAB
     Route: 058
     Dates: start: 201410

REACTIONS (9)
  - Abscess intestinal [Recovered/Resolved]
  - Pain [Not Recovered/Not Resolved]
  - Enteritis [Recovered/Resolved]
  - Ileal ulcer [Recovered/Resolved]
  - Depressed mood [Unknown]
  - Rectal haemorrhage [Unknown]
  - Depression [Unknown]
  - Post procedural infection [Unknown]
  - Drug ineffective [Not Recovered/Not Resolved]

NARRATIVE: CASE EVENT DATE: 2014
